FAERS Safety Report 9393075 (Version 2)
Quarter: 2013Q3

REPORT INFORMATION
  Report Type: Spontaneous
  Country: US (occurrence: US)
  Receive Date: 20130710
  Receipt Date: 20130718
  Transmission Date: 20140515
  Serious: Yes (Hospitalization)
  Sender: FDA-Public Use
  Company Number: US-MALLINCKRODT-T201303621

PATIENT
  Age: 43 Year
  Sex: 0

DRUGS (2)
  1. CONRAY [Suspect]
     Indication: SPINAL MYELOGRAM
     Dosage: 10 ML, SINGLE
     Route: 037
     Dates: start: 20130701, end: 20130701
  2. CONRAY [Suspect]
     Dosage: UNK
     Route: 037
     Dates: start: 20130701, end: 20130701

REACTIONS (4)
  - Convulsion [Unknown]
  - Hypoaesthesia [Unknown]
  - Paraesthesia [Unknown]
  - Incorrect route of drug administration [Unknown]
